FAERS Safety Report 20255085 (Version 1)
Quarter: 2021Q4

REPORT INFORMATION
  Report Type: Spontaneous
  Country: DE (occurrence: DE)
  Receive Date: 20211230
  Receipt Date: 20211230
  Transmission Date: 20220303
  Serious: Yes (Hospitalization, Other)
  Sender: FDA-Public Use
  Company Number: DE-ROCHE-2175637

PATIENT
  Age: 37 Year
  Sex: Female

DRUGS (11)
  1. IBUPROFEN [Suspect]
     Active Substance: IBUPROFEN
     Indication: Premedication
     Route: 065
  2. DIMETHINDENE [Suspect]
     Active Substance: DIMETHINDENE
     Indication: Premedication
     Route: 065
  3. CORTISONE [Suspect]
     Active Substance: CORTISONE
     Indication: Premedication
     Route: 065
  4. MABTHERA [Suspect]
     Active Substance: RITUXIMAB
     Indication: Neuromyelitis optica spectrum disorder
     Dosage: 2 INFUSIONS
     Route: 042
     Dates: start: 201712, end: 201712
  5. MABTHERA [Suspect]
     Active Substance: RITUXIMAB
     Indication: Multiple sclerosis
     Dosage: 2 INFUSIONS
     Route: 042
     Dates: start: 202004, end: 202004
  6. MABTHERA [Suspect]
     Active Substance: RITUXIMAB
     Dosage: 2 INFUSIONS
     Route: 042
     Dates: start: 20181031, end: 20181115
  7. MABTHERA [Suspect]
     Active Substance: RITUXIMAB
     Dosage: 2 INFUSIONS
     Route: 042
     Dates: start: 202004, end: 202004
  8. MABTHERA [Suspect]
     Active Substance: RITUXIMAB
     Dosage: 2 INFUSIONS
     Route: 042
     Dates: start: 20190716, end: 20190729
  9. MABTHERA [Suspect]
     Active Substance: RITUXIMAB
     Dosage: LAST INFUSIONS OF RITUXIMAB WERE GIVEN ON 31/OCT/2018 AND 15/NOV/2018
     Route: 042
     Dates: start: 20160301, end: 20160315
  10. DALFAMPRIDINE [Concomitant]
     Active Substance: DALFAMPRIDINE
     Indication: Product used for unknown indication
     Dosage: 1-0-1
     Route: 065
  11. INFLUENZA VIRUS VACCINE [Concomitant]
     Active Substance: INFLUENZA VIRUS VACCINE
     Indication: Influenza immunisation
     Route: 065
     Dates: start: 201810, end: 201810

REACTIONS (12)
  - Muscular weakness [Recovering/Resolving]
  - Immunosuppression [Unknown]
  - Multiple sclerosis relapse [Recovering/Resolving]
  - Fatigue [Recovered/Resolved]
  - Blood immunoglobulin G decreased [Not Recovered/Not Resolved]
  - Fluid retention [Recovering/Resolving]
  - Migraine [Recovering/Resolving]
  - Language disorder [Recovered/Resolved]
  - Malaise [Unknown]
  - Muscle spasticity [Recovering/Resolving]
  - B-lymphocyte count increased [Recovering/Resolving]
  - Asthenia [Recovered/Resolved]

NARRATIVE: CASE EVENT DATE: 20160301
